FAERS Safety Report 8320454-8 (Version None)
Quarter: 2012Q2

REPORT INFORMATION
  Report Type: 
  Country: None (occurrence: None)
  Receive Date: 20120426
  Receipt Date: 20120426
  Transmission Date: 20120825
  Serious: Yes (Hospitalization)
  Sender: FDA-Public Use
  Company Number: None

PATIENT
  Sex: Female
  Weight: 44.9 kg

DRUGS (2)
  1. ETOPOSIDE [Suspect]
     Dosage: 770 MG
  2. CYCLOPHOSPHAMIDE [Suspect]
     Dosage: 0 MG

REACTIONS (5)
  - CAECITIS [None]
  - SEPTIC SHOCK [None]
  - HAEMATOCRIT DECREASED [None]
  - RECTAL HAEMORRHAGE [None]
  - LARGE INTESTINE PERFORATION [None]
